FAERS Safety Report 6101617-9 (Version None)
Quarter: 2009Q1

REPORT INFORMATION
  Report Type: 
  Country: None (occurrence: None)
  Receive Date: 20090304
  Receipt Date: 20090225
  Transmission Date: 20090719
  Serious: Yes (Hospitalization)
  Sender: FDA-Public Use
  Company Number: US-BRISTOL-MYERS SQUIBB COMPANY-14521629

PATIENT
  Age: 45 Year
  Sex: Male
  Weight: 65 kg

DRUGS (1)
  1. DASATINIB [Suspect]
     Indication: HEPATIC NEOPLASM MALIGNANT
     Dosage: CYCLE= 28 DAYS;13-DEC-2007
     Route: 048
     Dates: start: 20070918, end: 20071229

REACTIONS (4)
  - BLOOD CALCIUM DECREASED [None]
  - BLOOD PHOSPHORUS DECREASED [None]
  - BLOOD POTASSIUM DECREASED [None]
  - GASTROINTESTINAL HAEMORRHAGE [None]
